FAERS Safety Report 5295322-9 (Version None)
Quarter: 2007Q2

REPORT INFORMATION
  Report Type: 
  Country: None (occurrence: None)
  Receive Date: 20070405
  Receipt Date: 20070330
  Transmission Date: 20071010
  Serious: Yes (Hospitalization)
  Sender: FDA-Public Use
  Company Number: 239233

PATIENT
  Age: 46 Year
  Sex: Male
  Weight: 71.7 kg

DRUGS (9)
  1. XOLAIR [Suspect]
     Indication: ASTHMA
     Dosage: 2/MONTH, SUBCUTANEOUS
     Route: 058
     Dates: start: 20060102
  2. NASONEX [Concomitant]
  3. XOPONEX (LEVABUTEROL HYDROCHLORIDE) [Concomitant]
  4. PROTONIX [Concomitant]
  5. ACTIGALL [Concomitant]
  6. FUROSEMIDE [Concomitant]
  7. SPIRONOLACTONE [Concomitant]
  8. ENTEX (GUAIFENESIN, PHENYLEPHRINE HYDROCHLORIDE) [Concomitant]
  9. ASTELIN [Concomitant]

REACTIONS (2)
  - GASTROINTESTINAL HAEMORRHAGE [None]
  - SCROTAL OEDEMA [None]
